FAERS Safety Report 18564907 (Version 1)
Quarter: 2020Q4

REPORT INFORMATION
  Report Type: Spontaneous
  Country: FR (occurrence: FR)
  Receive Date: 20201201
  Receipt Date: 20201201
  Transmission Date: 20210114
  Serious: Yes (Hospitalization, Other)
  Sender: FDA-Public Use
  Company Number: FR-PFIZER INC-2020469408

PATIENT
  Age: 55 Year
  Sex: Female

DRUGS (4)
  1. LOVENOX [Suspect]
     Active Substance: ENOXAPARIN SODIUM
     Dosage: UNK
     Route: 042
  2. SOLU-MEDROL [Suspect]
     Active Substance: METHYLPREDNISOLONE SODIUM SUCCINATE
     Dosage: UNK
     Route: 042
  3. LOVENOX [Concomitant]
     Active Substance: ENOXAPARIN SODIUM
     Dosage: UNK
     Route: 065
  4. TECFIDERA [Suspect]
     Active Substance: DIMETHYL FUMARATE
     Indication: RELAPSING-REMITTING MULTIPLE SCLEROSIS
     Dosage: UNK
     Route: 065

REACTIONS (19)
  - Pain [Unknown]
  - Vein rupture [Unknown]
  - Sensory disturbance [Unknown]
  - Muscle spasms [Unknown]
  - Heat stroke [Unknown]
  - General symptom [Unknown]
  - Insomnia [Unknown]
  - Ophthalmoplegia [Unknown]
  - Muscle spasticity [Unknown]
  - Phlebitis [Unknown]
  - Paraesthesia [Unknown]
  - Multiple sclerosis relapse [Unknown]
  - Muscular weakness [Unknown]
  - Poor quality sleep [Unknown]
  - Hyperglycaemia [Unknown]
  - Injection site bruising [Not Recovered/Not Resolved]
  - Muscle tightness [Unknown]
  - Stress [Unknown]
  - Mobility decreased [Unknown]

NARRATIVE: CASE EVENT DATE: 20200920
